FAERS Safety Report 4282193-2 (Version None)
Quarter: 2004Q1

REPORT INFORMATION
  Report Type: 
  Country: None (occurrence: None)
  Receive Date: 20040130
  Receipt Date: 20031125
  Transmission Date: 20041129
  Serious: Yes (Death, Hospitalization)
  Sender: FDA-Public Use
  Company Number: US-GLAXOSMITHKLINE-A0441077A

PATIENT
  Age: 52 Year
  Sex: Female
  Weight: 87.9 kg

DRUGS (14)
  1. NAVELBINE [Suspect]
     Indication: BREAST CANCER METASTATIC
     Dosage: 40MG WEEKLY
     Route: 042
     Dates: start: 20030725, end: 20031107
  2. TAXOL [Suspect]
     Indication: BREAST CANCER METASTATIC
     Dosage: 102MG WEEKLY
     Route: 042
     Dates: start: 20030725, end: 20031107
  3. NEUPOGEN [Concomitant]
  4. EPOGEN [Concomitant]
  5. VIOXX [Concomitant]
  6. PROZAC [Concomitant]
  7. PREVACID [Concomitant]
  8. ALEVE [Concomitant]
  9. SYNTHROID [Concomitant]
  10. STOOL SOFTENERS [Concomitant]
  11. MIRALAX [Concomitant]
  12. SENNA [Concomitant]
  13. OXYCODONE HCL [Concomitant]
  14. OXYCONTIN [Concomitant]

REACTIONS (9)
  - APHASIA [None]
  - CEREBROVASCULAR ACCIDENT [None]
  - DISEASE PROGRESSION [None]
  - FACIAL PALSY [None]
  - INCONTINENCE [None]
  - MENTAL STATUS CHANGES [None]
  - METASTASES TO CENTRAL NERVOUS SYSTEM [None]
  - PNEUMONIA [None]
  - VISION BLURRED [None]
